FAERS Safety Report 8492690-1 (Version None)
Quarter: 2012Q3

REPORT INFORMATION
  Report Type: 
  Country: None (occurrence: None)
  Receive Date: 20120706
  Receipt Date: 20120627
  Transmission Date: 20120928
  Serious: Yes (Other)
  Sender: FDA-Public Use
  Company Number: US-ABBOTT-12P-163-0949443-00

PATIENT
  Sex: Female
  Weight: 86.26 kg

DRUGS (4)
  1. METHOTREXATE [Concomitant]
     Indication: PRODUCT USED FOR UNKNOWN INDICATION
  2. FOLIC ACID [Concomitant]
     Indication: PRODUCT USED FOR UNKNOWN INDICATION
  3. HUMIRA [Suspect]
     Indication: RHEUMATOID ARTHRITIS
  4. ASPIRIN [Concomitant]
     Indication: PRODUCT USED FOR UNKNOWN INDICATION

REACTIONS (6)
  - TENDON DISORDER [None]
  - INJECTION SITE SWELLING [None]
  - STRESS FRACTURE [None]
  - PAIN IN EXTREMITY [None]
  - INJECTION SITE ERYTHEMA [None]
  - TRIGGER FINGER [None]
